FAERS Safety Report 6647843-1 (Version None)
Quarter: 2010Q1

REPORT INFORMATION
  Report Type: 
  Country: None (occurrence: None)
  Receive Date: 20100324
  Receipt Date: 20100308
  Transmission Date: 20100710
  Serious: No
  Sender: FDA-Public Use
  Company Number: US-JNJFOC-20100302569

PATIENT
  Sex: Female
  Weight: 65.77 kg

DRUGS (6)
  1. FENTANYL CITRATE [Suspect]
     Indication: PELVIC PAIN
     Route: 062
     Dates: start: 20100215
  2. FENTANYL CITRATE [Suspect]
     Indication: NECK PAIN
     Route: 062
     Dates: start: 20100215
  3. MORPHINE SULFATE [Concomitant]
     Indication: BREAKTHROUGH PAIN
     Route: 048
  4. NEURONTIN [Concomitant]
     Indication: NEUROPATHY PERIPHERAL
     Route: 048
  5. CELEXA [Concomitant]
     Indication: DEPRESSION
     Route: 048
  6. ATIVAN [Concomitant]
     Indication: PANIC ATTACK
     Route: 048

REACTIONS (3)
  - DRUG DOSE OMISSION [None]
  - DRUG EFFECT DECREASED [None]
  - PRODUCT QUALITY ISSUE [None]
